FAERS Safety Report 8643864 (Version 2)
Quarter: 2013Q1

REPORT INFORMATION
  Report Type: Spontaneous
  Country: DE (occurrence: DE)
  Receive Date: 20120629
  Receipt Date: 20130114
  Transmission Date: 20140127
  Serious: Yes (Hospitalization)
  Sender: FDA-Public Use
  Company Number: DE-SANOFI-AVENTIS-2012SA045732

PATIENT
  Age: 44 Year
  Sex: Female
  Weight: 64 kg

DRUGS (1)
  1. TAXOTERE [Suspect]
     Indication: BREAST CANCER
     Dosage: EINMALIG
     Route: 042
     Dates: start: 20120611, end: 20120611

REACTIONS (4)
  - Paraparesis [Recovered/Resolved]
  - Pain [Recovered/Resolved]
  - Skin discomfort [Recovered/Resolved]
  - Leukopenia [Unknown]
